FAERS Safety Report 8907692 (Version 2)
Quarter: 2014Q2

REPORT INFORMATION
  Report Type: Spontaneous
  Country: FR (occurrence: FR)
  Receive Date: 20121114
  Receipt Date: 20131018
  Transmission Date: 20141212
  Serious: Yes (Life-Threatening, Hospitalization)
  Sender: FDA-Public Use
  Company Number: FR-PFIZER INC-2012282198

PATIENT
  Age: 66 Year
  Sex: Male

DRUGS (3)
  1. SOLU-MEDROL [Suspect]
     Indication: CENTRAL NERVOUS SYSTEM LESION
     Dosage: 120 MG, 2X/DAY
     Route: 042
     Dates: start: 201209, end: 20120919
  2. MEDROL [Suspect]
     Indication: CENTRAL NERVOUS SYSTEM LESION
     Dosage: 100 MG IN THE MORNING AND 50 MG IN THE EVENING
     Route: 048
     Dates: start: 20120920
  3. IRESSA [Suspect]
     Indication: NON-SMALL CELL LUNG CANCER
     Dosage: 250 MG, 1X/DAY
     Route: 048
     Dates: start: 20120824, end: 20121003

REACTIONS (3)
  - Large intestine perforation [Unknown]
  - Hepatocellular injury [Unknown]
  - Diarrhoea [Unknown]
